FAERS Safety Report 5142904-0 (Version None)
Quarter: 2006Q4

REPORT INFORMATION
  Report Type: 
  Country: None (occurrence: None)
  Receive Date: 20061030
  Receipt Date: 20061017
  Transmission Date: 20070319
  Serious: Yes (Hospitalization)
  Sender: FDA-Public Use
  Company Number: DK200610002671

PATIENT
  Age: 53 Year
  Sex: Female

DRUGS (2)
  1. TERIPARATIDE (TERIPARATIDE) PEN, DISPOSABLE [Suspect]
     Indication: OSTEOPOROSIS
     Dosage: 20 UG, DAILY (1/D), SUBCUTANEOUS
     Route: 058
     Dates: start: 20051001, end: 20061016
  2. FORTEO [Concomitant]

REACTIONS (2)
  - ANAEMIA [None]
  - BACK PAIN [None]
